FAERS Safety Report 5734481-8 (Version None)
Quarter: 2008Q2

REPORT INFORMATION
  Report Type: 
  Country: None (occurrence: None)
  Receive Date: 20080508
  Receipt Date: 20080508
  Transmission Date: 20081010
  Serious: Yes (Life-Threatening)
  Sender: FDA-Public Use
  Company Number: None

PATIENT
  Age: 69 Year
  Sex: Female

DRUGS (1)
  1. LANTUS INSULIN [Suspect]
     Dosage: 10 UNITS QHS SQ
     Route: 058

REACTIONS (1)
  - HYPOGLYCAEMIA [None]
